FAERS Safety Report 5329827-9 (Version None)
Quarter: 2007Q2

REPORT INFORMATION
  Report Type: 
  Country: None (occurrence: None)
  Receive Date: 20070521
  Receipt Date: 20070509
  Transmission Date: 20071010
  Serious: Yes (Other)
  Sender: FDA-Public Use
  Company Number: JP-ROCHE-489762

PATIENT
  Age: 32 Year
  Sex: Female
  Weight: 45 kg

DRUGS (3)
  1. TAMIFLU [Suspect]
     Indication: INFLUENZA
     Route: 048
     Dates: start: 20070311, end: 20070313
  2. CALONAL [Concomitant]
     Route: 048
  3. POLARAMINE [Concomitant]
     Route: 048
     Dates: start: 20070311, end: 20070313

REACTIONS (2)
  - PLATELET COUNT DECREASED [None]
  - WHITE BLOOD CELL COUNT DECREASED [None]
